FAERS Safety Report 7659116-9 (Version None)
Quarter: 2011Q3

REPORT INFORMATION
  Report Type: 
  Country: None (occurrence: None)
  Receive Date: 20110805
  Receipt Date: 20110719
  Transmission Date: 20111222
  Serious: Yes (Hospitalization)
  Sender: FDA-Public Use
  Company Number: US-GLAXOSMITHKLINE-A0890344A

PATIENT
  Sex: Male

DRUGS (8)
  1. METFORMIN HCL [Concomitant]
  2. GLUCOPHAGE [Concomitant]
  3. VIAGRA [Concomitant]
  4. GLYBURIDE [Concomitant]
  5. LANTUS [Concomitant]
  6. PLAVIX [Concomitant]
  7. AVANDIA [Suspect]
     Indication: DIABETES MELLITUS
     Route: 048
     Dates: start: 20040101, end: 20100101
  8. LOPID [Concomitant]

REACTIONS (2)
  - CEREBROVASCULAR ACCIDENT [None]
  - CARDIOVASCULAR DISORDER [None]
